FAERS Safety Report 5023403-3 (Version None)
Quarter: 2006Q2

REPORT INFORMATION
  Report Type: 
  Country: None (occurrence: None)
  Receive Date: 20060612
  Receipt Date: 20060530
  Transmission Date: 20061013
  Serious: Yes (Disabling)
  Sender: FDA-Public Use
  Company Number: FR-AVENTIS-200611976FR

PATIENT
  Age: 84 Year
  Sex: Female

DRUGS (6)
  1. LASILIX [Suspect]
     Indication: DRUG USE FOR UNKNOWN INDICATION
     Route: 048
     Dates: start: 20050915
  2. STILNOX [Suspect]
     Indication: DRUG USE FOR UNKNOWN INDICATION
     Route: 048
  3. PLAVIX [Suspect]
     Indication: DRUG USE FOR UNKNOWN INDICATION
     Route: 048
     Dates: start: 19970715
  4. SOMATULINE LP 30 MG [Suspect]
     Indication: NEUROENDOCRINE TUMOUR
     Route: 030
     Dates: start: 20051015, end: 20051215
  5. SOTALOL HCL [Suspect]
     Indication: DRUG USE FOR UNKNOWN INDICATION
     Route: 048
     Dates: start: 20050915
  6. RENITEC [Suspect]
     Indication: DRUG USE FOR UNKNOWN INDICATION
     Route: 048
     Dates: start: 20050915

REACTIONS (2)
  - EXOPHTHALMOS [None]
  - MUSCLE HYPERTROPHY [None]
